FAERS Safety Report 5176996-X (Version None)
Quarter: 2006Q4

REPORT INFORMATION
  Report Type: 
  Country: None (occurrence: None)
  Receive Date: 20061207
  Receipt Date: 20061204
  Transmission Date: 20070319
  Serious: Yes (Hospitalization, Other)
  Sender: FDA-Public Use
  Company Number: FRWYE733304DEC06

PATIENT
  Age: 13 Year
  Sex: Male

DRUGS (2)
  1. ADVIL [Suspect]
     Indication: PYREXIA
     Dosage: ORAL
     Route: 048
     Dates: start: 20061102, end: 20061106
  2. AUGMENTIN '125' [Suspect]
     Indication: TONSILLITIS
     Dosage: ORAL
     Route: 048
     Dates: start: 20061106, end: 20061109

REACTIONS (8)
  - ABDOMINAL PAIN [None]
  - ANOREXIA [None]
  - BACK PAIN [None]
  - BLOOD URINE PRESENT [None]
  - DIARRHOEA [None]
  - HAEMATURIA [None]
  - PHARYNGOLARYNGEAL PAIN [None]
  - VOMITING [None]
